FAERS Safety Report 20455247 (Version 3)
Quarter: 2022Q1

REPORT INFORMATION
  Report Type: Spontaneous
  Country: GB (occurrence: GB)
  Receive Date: 20220210
  Receipt Date: 20220215
  Transmission Date: 20220423
  Serious: Yes (Hospitalization, Other)
  Sender: FDA-Public Use
  Company Number: GB-MYLANLABS-2022M1010422

PATIENT
  Age: 25 Year
  Sex: Male

DRUGS (2)
  1. CLOZARIL [Suspect]
     Active Substance: CLOZAPINE
     Indication: Schizophrenia
     Dosage: 275 MILLIGRAM, QD (75MG MORNING, 125MG NOON AND 75MG NIGHT TIME)
     Route: 048
     Dates: start: 20160720, end: 2022
  2. CLOZARIL [Suspect]
     Active Substance: CLOZAPINE
     Dosage: START DATE: 11-FEB-2022
     Route: 048

REACTIONS (4)
  - Hospitalisation [Unknown]
  - Neutrophil count decreased [Recovered/Resolved]
  - COVID-19 [Unknown]
  - White blood cell count decreased [Recovered/Resolved]

NARRATIVE: CASE EVENT DATE: 20220129
